FAERS Safety Report 9677064 (Version 2)
Quarter: 2013Q4

REPORT INFORMATION
  Report Type: Spontaneous
  Country: US (occurrence: US)
  Receive Date: 20131108
  Receipt Date: 20131220
  Transmission Date: 20140711
  Serious: No
  Sender: FDA-Public Use
  Company Number: US-BIOGENIDEC-2013BI104964

PATIENT
  Age: 52 Year
  Sex: Female

DRUGS (1)
  1. TYSABRI [Suspect]
     Indication: MULTIPLE SCLEROSIS
     Route: 042
     Dates: start: 20110721, end: 20130521

REACTIONS (4)
  - Drug ineffective [Unknown]
  - Multiple sclerosis relapse [Unknown]
  - Eczema nummular [Unknown]
  - Neoplasm skin [Recovered/Resolved]
